FAERS Safety Report 13579282 (Version 3)
Quarter: 2017Q2

REPORT INFORMATION
  Report Type: Report from Study
  Country: ES (occurrence: ES)
  Receive Date: 20170525
  Receipt Date: 20170608
  Transmission Date: 20170830
  Serious: Yes (Other)
  Sender: FDA-Public Use
  Company Number: PHHY2017ES075702

PATIENT
  Age: 12 Year
  Sex: Female
  Weight: 67 kg

DRUGS (1)
  1. TRAMETINIB [Suspect]
     Active Substance: TRAMETINIB
     Indication: GLIOMA
     Dosage: 0.025 MG/KG, QD
     Route: 048
     Dates: start: 20160505

REACTIONS (10)
  - Fatigue [Not Recovered/Not Resolved]
  - Haematochezia [Recovering/Resolving]
  - Purpura [Recovered/Resolved]
  - Eczema [Recovering/Resolving]
  - Trichomegaly [Recovering/Resolving]
  - Hair colour changes [Not Recovered/Not Resolved]
  - Hypersensitivity vasculitis [Recovered/Resolved]
  - Diarrhoea [Recovering/Resolving]
  - Alopecia [Recovered/Resolved]
  - Paronychia [Recovering/Resolving]

NARRATIVE: CASE EVENT DATE: 20160720
